FAERS Safety Report 14667170 (Version 1)
Quarter: 2018Q1

REPORT INFORMATION
  Report Type: Spontaneous
  Country: DE (occurrence: DE)
  Receive Date: 20180322
  Receipt Date: 20180322
  Transmission Date: 20180509
  Serious: Yes (Hospitalization)
  Sender: FDA-Public Use
  Company Number: DE-WEST-WARD PHARMACEUTICALS CORP.-DE-H14001-18-02054

PATIENT
  Age: 81 Year
  Sex: Female
  Weight: 83 kg

DRUGS (5)
  1. CISPLATIN. [Suspect]
     Active Substance: CISPLATIN
     Indication: SQUAMOUS CELL CARCINOMA OF HEAD AND NECK
     Route: 065
     Dates: start: 20150904, end: 20150907
  2. EMEND [Concomitant]
     Active Substance: APREPITANT
     Indication: PREMEDICATION
     Dosage: (1)
     Route: 065
     Dates: start: 20150903
  3. ERBITUX [Suspect]
     Active Substance: CETUXIMAB
     Indication: SQUAMOUS CELL CARCINOMA OF HEAD AND NECK
     Route: 042
     Dates: start: 20150903, end: 20150903
  4. ZOFRAN [Concomitant]
     Active Substance: ONDANSETRON HYDROCHLORIDE
     Indication: PREMEDICATION
     Dosage: (1)
     Route: 065
     Dates: start: 20150903
  5. 5-FU [Suspect]
     Active Substance: FLUOROURACIL
     Indication: SQUAMOUS CELL CARCINOMA OF HEAD AND NECK
     Route: 065
     Dates: start: 20150904, end: 20150907

REACTIONS (2)
  - Skin reaction [Recovered/Resolved]
  - General physical health deterioration [Recovered/Resolved]

NARRATIVE: CASE EVENT DATE: 20150907
